FAERS Safety Report 17090338 (Version 1)
Quarter: 2019Q4

REPORT INFORMATION
  Report Type: Spontaneous
  Country: US (occurrence: US)
  Receive Date: 20191129
  Receipt Date: 20191129
  Transmission Date: 20200122
  Serious: No
  Sender: FDA-Public Use
  Company Number: US-UCBSA-2018023427

PATIENT
  Age: 38 Year
  Sex: Male

DRUGS (2)
  1. CIMZIA [Suspect]
     Active Substance: CERTOLIZUMAB PEGOL
     Indication: PRODUCT USED FOR UNKNOWN INDICATION
     Dosage: 200 MG, (SPLIT LOADING DOSE INTO 200 MG ON 07-MAY AND 200 MG ON 14-MAY-2018)
     Dates: start: 20180507, end: 20180507
  2. CIMZIA [Suspect]
     Active Substance: CERTOLIZUMAB PEGOL
     Dosage: 200 MG, (SPLIT LOADING DOSE INTO 200 MG ON 07-MAY AND 200 MG ON 14-MAY-2018)
     Dates: start: 20180514, end: 20180514

REACTIONS (1)
  - Intentional product misuse [Unknown]

NARRATIVE: CASE EVENT DATE: 20180507
